FAERS Safety Report 5751064-4 (Version None)
Quarter: 2008Q2

REPORT INFORMATION
  Report Type: 
  Country: None (occurrence: None)
  Receive Date: 20080528
  Receipt Date: 20080523
  Transmission Date: 20081010
  Serious: Yes (Life-Threatening, Hospitalization)
  Sender: FDA-Public Use
  Company Number: US-WYE-H04241708

PATIENT
  Sex: Female
  Weight: 63.56 kg

DRUGS (3)
  1. PRISTIQ [Suspect]
     Indication: CYCLOTHYMIC DISORDER
     Route: 048
     Dates: start: 20080411, end: 20080425
  2. PRISTIQ [Suspect]
     Route: 048
     Dates: start: 20080501
  3. KLONOPIN [Suspect]
     Indication: GENERALISED ANXIETY DISORDER
     Route: 048
     Dates: start: 20060301

REACTIONS (1)
  - PNEUMONIA PRIMARY ATYPICAL [None]
